FAERS Safety Report 4922687-7 (Version None)
Quarter: 2006Q1

REPORT INFORMATION
  Report Type: 
  Country: None (occurrence: None)
  Receive Date: 20060224
  Receipt Date: 20050902
  Transmission Date: 20060701
  Serious: Yes (Hospitalization)
  Sender: FDA-Public Use
  Company Number: IT-ABBOTT-05P-083-0310190-00

PATIENT
  Sex: Female
  Weight: 45 kg

DRUGS (4)
  1. HUMIRA [Suspect]
     Indication: RHEUMATOID ARTHRITIS
     Route: 058
     Dates: start: 20041001, end: 20050822
  2. RAMIPRIL [Concomitant]
     Indication: HYPERTENSION
     Dates: start: 20050830
  3. PREDNISONE [Concomitant]
     Indication: RHEUMATOID ARTHRITIS
     Dates: start: 19991217
  4. AMLODIPINE BESYLATE [Concomitant]
     Indication: HYPERTENSION
     Dates: start: 20050830

REACTIONS (1)
  - LEISHMANIASIS [None]
